FAERS Safety Report 4478289-2 (Version None)
Quarter: 2004Q4

REPORT INFORMATION
  Report Type: 
  Country: None (occurrence: None)
  Receive Date: 20041013
  Receipt Date: 20040928
  Transmission Date: 20050328
  Serious: Yes (Life-Threatening)
  Sender: FDA-Public Use
  Company Number: GBS040915668

PATIENT
  Age: 75 Year
  Sex: Female

DRUGS (1)
  1. XIGRIS [Suspect]
     Dosage: 24 UG/KG/HR

REACTIONS (1)
  - THROMBOCYTOPENIA [None]
